FAERS Safety Report 10021380 (Version 1)
Quarter: 2014Q1

REPORT INFORMATION
  Report Type: Spontaneous
  Country: IN (occurrence: None)
  Receive Date: 20140313
  Receipt Date: 20140313
  Transmission Date: 20141002
  Serious: Yes (Other)
  Sender: FDA-Public Use
  Company Number: IPC201403-000110

PATIENT
  Age: 57 Year
  Sex: Female

DRUGS (1)
  1. ATENOLOL [Suspect]
     Indication: HYPERTENSION

REACTIONS (3)
  - Hepatotoxicity [None]
  - Hepatitis acute [None]
  - Hepatic cirrhosis [None]
